FAERS Safety Report 16366051 (Version 1)
Quarter: 2019Q2

REPORT INFORMATION
  Report Type: Spontaneous
  Country: US (occurrence: US)
  Receive Date: 20190529
  Receipt Date: 20190529
  Transmission Date: 20190711
  Serious: Yes (Hospitalization, Other)
  Sender: FDA-Public Use
  Company Number: US-APOTEX-2019AP015268

PATIENT
  Age: 8 Month
  Sex: Male

DRUGS (1)
  1. FENTANYL. [Suspect]
     Active Substance: FENTANYL
     Indication: PRODUCT USED FOR UNKNOWN INDICATION
     Dosage: 25 ?G PER HOUR
     Route: 065

REACTIONS (3)
  - Drug level increased [Recovering/Resolving]
  - Brain oedema [Recovering/Resolving]
  - Accidental exposure to product by child [Recovering/Resolving]
